FAERS Safety Report 16288155 (Version 1)
Quarter: 2019Q2

REPORT INFORMATION
  Report Type: Spontaneous
  Country: FR (occurrence: FR)
  Receive Date: 20190508
  Receipt Date: 20190508
  Transmission Date: 20190711
  Serious: Yes (Other)
  Sender: FDA-Public Use
  Company Number: PHHY2019FR103805

PATIENT
  Age: 16 Year
  Sex: Female

DRUGS (1)
  1. NEORAL [Suspect]
     Active Substance: CYCLOSPORINE
     Indication: LIVER TRANSPLANT
     Dosage: 0.6 MG, BID
     Route: 065

REACTIONS (4)
  - Headache [Unknown]
  - Epilepsy [Unknown]
  - Dizziness [Unknown]
  - Eye pain [Unknown]
